FAERS Safety Report 15885558 (Version 1)
Quarter: 2019Q1

REPORT INFORMATION
  Report Type: Spontaneous
  Country: ES (occurrence: ES)
  Receive Date: 20190129
  Receipt Date: 20190129
  Transmission Date: 20190417
  Serious: Yes (Hospitalization, Other)
  Sender: FDA-Public Use
  Company Number: ES-TEVA-2019-ES-1003508

PATIENT
  Age: 72 Year
  Sex: Female
  Weight: 74 kg

DRUGS (18)
  1. DUROGESIC [Interacting]
     Active Substance: FENTANYL
     Indication: PAIN
     Dosage: DUROGESIC: 1 TRANSDERMAL PATCH OF 100 MICROGRAM. AND ANOTHER OF 50 MICROGRAM. EVERY 72 HOURS
     Route: 062
     Dates: start: 20181221
  2. MYCOSTATIN [Concomitant]
     Active Substance: NYSTATIN
  3. ZOVIRAX [Concomitant]
     Active Substance: ACYCLOVIR
  4. CLEXANE [Concomitant]
     Active Substance: ENOXAPARIN SODIUM
     Route: 058
  5. PARACETAMOL 1GR. COMPRIMIDO [Concomitant]
  6. BINOCRIT 30.000 UI/0,75 ML SOLUCION INYECTABLE EN UNA JERINGA PRECARGA [Concomitant]
     Dosage: 30,000 UI/0.75 ML INJECTABLE SOLUTION IN A PRELOADED SYRINGE
     Route: 058
  7. SEGURIL 40 MG COMPRIMIDOS [Concomitant]
     Active Substance: FUROSEMIDE
  8. NATECAL D [Concomitant]
     Active Substance: CALCIUM CARBONATE\CHOLECALCIFEROL
  9. NEURONTIN [Interacting]
     Active Substance: GABAPENTIN
     Dosage: NEURONTIN 300:1 TABLET WITH BREAKFAST, LUNCH AND DINNER
     Route: 048
     Dates: start: 201509
  10. ESCITALOPRAM 15 EFG COMPRIMIDO [Suspect]
     Active Substance: ESCITALOPRAM OXALATE
     Indication: DEPRESSION
     Dosage: 15 MILLIGRAM DAILY; ESCITALOPRAM 15 EFG: 1 TABLET/DAY WITH BREAKFAST. DURING THE ENTRY INTO HISTORY
     Route: 048
     Dates: start: 20181221, end: 20181222
  11. TRANKIMAZIN 1 [Interacting]
     Active Substance: ALPRAZOLAM
     Indication: DEPRESSION
     Dosage: 1 MILLIGRAM DAILY; TRANKIMAZIN 1:1 TABLET/DAY 30 MINUTES BEFORE BEDTIME.
     Route: 048
     Dates: start: 201706
  12. PANTOPRAZOL 20 MG COMPRIMIDO [Concomitant]
     Active Substance: PANTOPRAZOLE SODIUM
  13. HIDROXIL B1-B6-B12 COMPRIMIDOS RECUBIERTOS CON PELICULA [Concomitant]
  14. SEVREDOL 10 COMPRIMIDOS [Interacting]
     Active Substance: MORPHINE SULFATE
     Indication: BACK PAIN
     Dosage: SEVREDOL 10:1 COMPRESSED IF MAJOR PAINS DESPITE TREATMENT WITH NEURONT?N 300 AND DUROGESIC 100 + 50.
     Route: 048
     Dates: start: 20181221
  15. NOLOTIL [Concomitant]
  16. ZYLORIC 100 MG COMPRIMIDOS [Concomitant]
  17. SERETIDE [Concomitant]
     Active Substance: FLUTICASONE PROPIONATE\SALMETEROL XINAFOATE
     Dosage: 50 MICROGRAMS/250 MICROGRAMS/INHALATION, INHALATION POWDER.
  18. BOREA [Concomitant]
     Active Substance: MEGESTROL ACETATE

REACTIONS (3)
  - Respiratory depression [Recovered/Resolved]
  - Depressed level of consciousness [Recovered/Resolved]
  - Drug interaction [Unknown]

NARRATIVE: CASE EVENT DATE: 20181222
